FAERS Safety Report 18265244 (Version 4)
Quarter: 2023Q4

REPORT INFORMATION
  Report Type: Spontaneous
  Country: US (occurrence: US)
  Receive Date: 20200914
  Receipt Date: 20231025
  Transmission Date: 20240109
  Serious: Yes (Other)
  Sender: FDA-Public Use
  Company Number: US-GILEAD-2020-0494605

PATIENT
  Age: 47 Year
  Sex: Female
  Weight: 81.633 kg

DRUGS (82)
  1. VIREAD [Suspect]
     Active Substance: TENOFOVIR DISOPROXIL FUMARATE
     Indication: HIV infection
     Dosage: UNK
     Route: 048
     Dates: start: 2011
  2. VIREAD [Suspect]
     Active Substance: TENOFOVIR DISOPROXIL FUMARATE
     Dosage: UNK
     Route: 048
     Dates: start: 2003, end: 201504
  3. TRUVADA [Suspect]
     Active Substance: EMTRICITABINE\TENOFOVIR DISOPROXIL FUMARATE
     Indication: HIV infection
     Dosage: UNK
     Route: 048
     Dates: start: 20150505, end: 20170427
  4. STRIBILD [Suspect]
     Active Substance: COBICISTAT\ELVITEGRAVIR\EMTRICITABINE\TENOFOVIR DISOPROXIL FUMARATE
     Indication: HIV infection
     Dosage: UNK
     Route: 048
     Dates: start: 20150423, end: 20150523
  5. ALENDRONATE [Concomitant]
     Active Substance: ALENDRONATE SODIUM
  6. DESCOVY [Concomitant]
     Active Substance: EMTRICITABINE\TENOFOVIR ALAFENAMIDE FUMARATE
  7. EVOTAZ [Concomitant]
     Active Substance: ATAZANAVIR SULFATE\COBICISTAT
  8. ISENTRESS [Concomitant]
     Active Substance: RALTEGRAVIR POTASSIUM
  9. ISENTRESS [Concomitant]
     Active Substance: RALTEGRAVIR POTASSIUM
  10. KALETRA [Concomitant]
     Active Substance: LOPINAVIR\RITONAVIR
  11. PREZISTA [Concomitant]
     Active Substance: DARUNAVIR ETHANOLATE
  12. REYATAZ [Concomitant]
     Active Substance: ATAZANAVIR SULFATE
  13. TIVICAY [Concomitant]
     Active Substance: DOLUTEGRAVIR SODIUM
  14. ACETAMINOPHEN [Concomitant]
     Active Substance: ACETAMINOPHEN
  15. ACTOS [Concomitant]
     Active Substance: PIOGLITAZONE HYDROCHLORIDE
  16. ALPRAZOLAM [Concomitant]
     Active Substance: ALPRAZOLAM
  17. AMOXICILLIN\CLAVULANATE POTASSIUM [Concomitant]
     Active Substance: AMOXICILLIN\CLAVULANATE POTASSIUM
  18. AMOXICILLIN [Concomitant]
     Active Substance: AMOXICILLIN
  19. ATORVASTATIN [Concomitant]
     Active Substance: ATORVASTATIN
  20. ATOVAQUONE [Concomitant]
     Active Substance: ATOVAQUONE
  21. AZITHROMYCIN [Concomitant]
     Active Substance: AZITHROMYCIN
  22. BENZONATATE [Concomitant]
     Active Substance: BENZONATATE
  23. BUDESONIDE [Concomitant]
     Active Substance: BUDESONIDE
  24. BUPROPION [Concomitant]
     Active Substance: BUPROPION
  25. BUSPIRONE [Concomitant]
     Active Substance: BUSPIRONE HYDROCHLORIDE
  26. CEFPROZIL [Concomitant]
     Active Substance: CEFPROZIL
  27. CEPHALEXIN [Concomitant]
     Active Substance: CEPHALEXIN
  28. CETIRIZINE [Concomitant]
     Active Substance: CETIRIZINE HYDROCHLORIDE
  29. CIPROFLOXACIN [Concomitant]
     Active Substance: CIPROFLOXACIN
  30. CLINDAMYCIN [Concomitant]
     Active Substance: CLINDAMYCIN
  31. CLONAZEPAM [Concomitant]
     Active Substance: CLONAZEPAM
  32. CYCLOBENZAPRINE [Concomitant]
     Active Substance: CYCLOBENZAPRINE
  33. DAPSONE [Concomitant]
     Active Substance: DAPSONE
  34. DEPO-PROVERA [Concomitant]
     Active Substance: MEDROXYPROGESTERONE ACETATE
  35. DIAZEPAM [Concomitant]
     Active Substance: DIAZEPAM
  36. DICLOFENAC [Concomitant]
     Active Substance: DICLOFENAC
  37. DIGOXIN [Concomitant]
     Active Substance: DIGOXIN
  38. DOXYCYCLINE [Concomitant]
     Active Substance: DOXYCYCLINE
  39. EFFEXOR [Concomitant]
     Active Substance: VENLAFAXINE HYDROCHLORIDE
  40. ESTRACE [Concomitant]
     Active Substance: ESTRADIOL
  41. ESTRADIOL [Concomitant]
     Active Substance: ESTRADIOL
  42. FENOFIBRATE [Concomitant]
     Active Substance: FENOFIBRATE
  43. FLUCONAZOLE [Concomitant]
     Active Substance: FLUCONAZOLE
  44. FLUTICASONE [Concomitant]
     Active Substance: FLUTICASONE
  45. GLIPIZIDE [Concomitant]
     Active Substance: GLIPIZIDE
  46. HYDROCODONE [Concomitant]
     Active Substance: HYDROCODONE
  47. HYDROCODONE BITARTRATE AND ACETAMINOPHEN [Concomitant]
     Active Substance: ACETAMINOPHEN\HYDROCODONE BITARTRATE
  48. IBUPROFEN [Concomitant]
     Active Substance: IBUPROFEN
  49. LEXAPRO [Concomitant]
     Active Substance: ESCITALOPRAM OXALATE
  50. LIDOCAINE [Concomitant]
     Active Substance: LIDOCAINE
  51. LIPITOR [Concomitant]
     Active Substance: ATORVASTATIN CALCIUM
  52. LISINOPRIL [Concomitant]
     Active Substance: LISINOPRIL
  53. LOSARTAN [Concomitant]
     Active Substance: LOSARTAN
  54. LOSARTAN POTASSIUM [Concomitant]
     Active Substance: LOSARTAN POTASSIUM
  55. MEDROXYPROGESTERONE [Concomitant]
     Active Substance: MEDROXYPROGESTERONE
  56. MELOXICAM [Concomitant]
     Active Substance: MELOXICAM
  57. METFORMIN [Concomitant]
     Active Substance: METFORMIN HYDROCHLORIDE
  58. METHYLPREDNISOLONE [Concomitant]
     Active Substance: METHYLPREDNISOLONE
  59. NABUMETONE [Concomitant]
     Active Substance: NABUMETONE
  60. NITROFURANTOIN [Concomitant]
     Active Substance: NITROFURANTOIN
  61. NYSTATIN [Concomitant]
     Active Substance: NYSTATIN
  62. OSELTAMIVIR [Concomitant]
     Active Substance: OSELTAMIVIR
  63. OXYCODONE [Concomitant]
     Active Substance: OXYCODONE
  64. PHENAZOPYRIDINE [Concomitant]
     Active Substance: PHENAZOPYRIDINE
  65. PRAVASTATIN [Concomitant]
     Active Substance: PRAVASTATIN
  66. PRAZOSIN [Concomitant]
     Active Substance: PRAZOSIN
  67. PREDNISONE [Concomitant]
     Active Substance: PREDNISONE
  68. PROAIR HFA [Concomitant]
     Active Substance: ALBUTEROL SULFATE
  69. PROLIA [Concomitant]
     Active Substance: DENOSUMAB
  70. PROMETHAZINE [Concomitant]
     Active Substance: PROMETHAZINE HYDROCHLORIDE
  71. RANITIDINE [Concomitant]
     Active Substance: RANITIDINE
  72. SERTRALINE [Concomitant]
     Active Substance: SERTRALINE HYDROCHLORIDE
  73. SULFAMETHOXAZOLE [Concomitant]
     Active Substance: SULFAMETHOXAZOLE
  74. TEMAZEPAM [Concomitant]
     Active Substance: TEMAZEPAM
  75. TIZANIDINE [Concomitant]
     Active Substance: TIZANIDINE
  76. TOBRAMYCIN [Concomitant]
     Active Substance: TOBRAMYCIN
  77. TRIAMCINOLONE [Concomitant]
     Active Substance: TRIAMCINOLONE
  78. ADENOSINE [Concomitant]
     Active Substance: ADENOSINE
  79. VENLAFAXINE [Concomitant]
     Active Substance: VENLAFAXINE HYDROCHLORIDE
  80. WELLBUTRIN [Concomitant]
     Active Substance: BUPROPION HYDROCHLORIDE
  81. ZOLOFT [Concomitant]
     Active Substance: SERTRALINE HYDROCHLORIDE
  82. ZOLPIDEM [Concomitant]
     Active Substance: ZOLPIDEM TARTRATE

REACTIONS (13)
  - Osteoporosis [Not Recovered/Not Resolved]
  - Spinal fracture [Not Recovered/Not Resolved]
  - Lower limb fracture [Recovered/Resolved]
  - Shoulder fracture [Recovered/Resolved]
  - Chronic kidney disease [Not Recovered/Not Resolved]
  - Lower limb fracture [Not Recovered/Not Resolved]
  - Femur fracture [Not Recovered/Not Resolved]
  - Multiple fractures [Recovered/Resolved]
  - Pain [Not Recovered/Not Resolved]
  - Emotional distress [Not Recovered/Not Resolved]
  - Anxiety [Not Recovered/Not Resolved]
  - Anhedonia [Not Recovered/Not Resolved]
  - Loss of personal independence in daily activities [Unknown]

NARRATIVE: CASE EVENT DATE: 20150701
